FAERS Safety Report 6381564-8 (Version None)
Quarter: 2009Q3

REPORT INFORMATION
  Report Type: 
  Country: None (occurrence: None)
  Receive Date: 20090925
  Receipt Date: 20090909
  Transmission Date: 20100115
  Serious: Yes (Other)
  Sender: FDA-Public Use
  Company Number: DSA_41687_2009

PATIENT
  Sex: Male

DRUGS (6)
  1. ENALAPRIL MALEATE [Suspect]
     Indication: HYPERTENSION
     Dosage: (20 MG, AM ORAL), (DF ORAL)
     Route: 048
     Dates: start: 20070901, end: 20090901
  2. ENALAPRIL MALEATE [Suspect]
     Indication: HYPERTENSION
     Dosage: (20 MG, AM ORAL), (DF ORAL)
     Route: 048
     Dates: start: 20070901, end: 20090901
  3. ENALAPRIL MALEATE [Suspect]
     Indication: HYPERTENSION
     Dosage: (20 MG, AM ORAL), (DF ORAL)
     Route: 048
     Dates: start: 20090901, end: 20090901
  4. ENALAPRIL MALEATE [Suspect]
     Indication: HYPERTENSION
     Dosage: (20 MG, AM ORAL), (DF ORAL)
     Route: 048
     Dates: start: 20090901, end: 20090901
  5. ENALAPRIL MALEATE [Suspect]
     Indication: HYPERTENSION
     Dosage: (20 MG, AM ORAL), (DF ORAL)
     Route: 048
     Dates: start: 20090901
  6. ENALAPRIL MALEATE [Suspect]
     Indication: HYPERTENSION
     Dosage: (20 MG, AM ORAL), (DF ORAL)
     Route: 048
     Dates: start: 20090901

REACTIONS (3)
  - DRUG INEFFECTIVE [None]
  - MENTAL IMPAIRMENT [None]
  - SOMNOLENCE [None]
